FAERS Safety Report 21337695 (Version 1)
Quarter: 2022Q3

REPORT INFORMATION
  Report Type: Spontaneous
  Country: TW (occurrence: None)
  Receive Date: 20220915
  Receipt Date: 20220915
  Transmission Date: 20221027
  Serious: Yes (Other)
  Sender: FDA-Public Use
  Company Number: 2022A315189

PATIENT
  Age: 61 Year
  Sex: Female

DRUGS (7)
  1. LYNPARZA [Suspect]
     Active Substance: OLAPARIB
     Route: 048
  2. TALAZOPARIB [Concomitant]
     Active Substance: TALAZOPARIB
     Indication: Metastases to pleura
     Dates: start: 202107
  3. TALAZOPARIB [Concomitant]
     Active Substance: TALAZOPARIB
     Indication: Metastases to lung
     Dates: start: 202107
  4. TALAZOPARIB [Concomitant]
     Active Substance: TALAZOPARIB
     Indication: Metastases to lymph nodes
     Dates: start: 202107
  5. TALAZOPARIB [Concomitant]
     Active Substance: TALAZOPARIB
     Indication: Metastases to bone
     Dates: start: 202107
  6. TALAZOPARIB [Concomitant]
     Active Substance: TALAZOPARIB
     Indication: Breast cancer metastatic
     Dates: start: 202107
  7. TALAZOPARIB [Concomitant]
     Active Substance: TALAZOPARIB
     Indication: Triple negative breast cancer
     Dates: start: 202107

REACTIONS (2)
  - Pulmonary embolism [Unknown]
  - Malignant neoplasm progression [Unknown]

NARRATIVE: CASE EVENT DATE: 20190301
